FAERS Safety Report 22786017 (Version 4)
Quarter: 2023Q4

REPORT INFORMATION
  Report Type: Spontaneous
  Country: US (occurrence: US)
  Receive Date: 20230804
  Receipt Date: 20231126
  Transmission Date: 20240109
  Serious: Yes (Other)
  Sender: FDA-Public Use
  Company Number: US-BRISTOL-MYERS SQUIBB COMPANY-2023-109402

PATIENT
  Age: 81 Year
  Sex: Male

DRUGS (1)
  1. POMALYST [Suspect]
     Active Substance: POMALIDOMIDE
     Indication: Plasma cell myeloma
     Dosage: 21 DAY ON AND 7 DAY OFF
     Route: 048

REACTIONS (6)
  - Diarrhoea [Recovered/Resolved]
  - Rash [Recovered/Resolved]
  - Fatigue [Unknown]
  - Asthenia [Unknown]
  - Blood pressure decreased [Unknown]
  - Immunodeficiency [Unknown]

NARRATIVE: CASE EVENT DATE: 20230803
